FAERS Safety Report 7936056-9 (Version None)
Quarter: 2011Q4

REPORT INFORMATION
  Report Type: 
  Country: None (occurrence: None)
  Receive Date: 20111123
  Receipt Date: 20111114
  Transmission Date: 20120403
  Serious: Yes (Other)
  Sender: FDA-Public Use
  Company Number: US-ABBOTT-11P-163-0873787-00

PATIENT
  Sex: Female

DRUGS (4)
  1. LOVASA [Concomitant]
     Indication: SUPPLEMENTATION THERAPY
  2. HUMIRA [Suspect]
     Indication: PSORIATIC ARTHROPATHY
     Dates: start: 20110601
  3. VITAMIN D [Concomitant]
     Indication: HYPOVITAMINOSIS
  4. HUMIRA [Suspect]
     Indication: RHEUMATOID ARTHRITIS

REACTIONS (2)
  - ENDOMETRIOSIS [None]
  - DYSFUNCTIONAL UTERINE BLEEDING [None]
